FAERS Safety Report 19188857 (Version 2)
Quarter: 2021Q2

REPORT INFORMATION
  Report Type: Spontaneous
  Country: US (occurrence: US)
  Receive Date: 20210428
  Receipt Date: 20210429
  Transmission Date: 20210717
  Serious: No
  Sender: FDA-Public Use
  Company Number: US-SA-2021SA127092

PATIENT
  Age: 94 Year
  Sex: Female

DRUGS (3)
  1. TOUJEO [Suspect]
     Active Substance: INSULIN GLARGINE
     Indication: DIABETES MELLITUS
     Dosage: 9 IU
     Route: 065
  2. TOUJEO [Suspect]
     Active Substance: INSULIN GLARGINE
     Dosage: 20 IU, QD
     Route: 065
  3. TOUJEO [Suspect]
     Active Substance: INSULIN GLARGINE
     Dosage: 13 IU
     Route: 065

REACTIONS (5)
  - Intentional product use issue [Unknown]
  - Device issue [Unknown]
  - Cardiac disorder [Unknown]
  - Drug dose omission by device [Unknown]
  - Blood glucose increased [Unknown]
